FAERS Safety Report 13335228 (Version 3)
Quarter: 2017Q2

REPORT INFORMATION
  Report Type: Report from Study
  Country: US (occurrence: US)
  Receive Date: 20170315
  Receipt Date: 20170407
  Transmission Date: 20170830
  Serious: No
  Sender: FDA-Public Use
  Company Number: US-AMGEN-USASL2017035983

PATIENT
  Age: 62 Year
  Sex: Female

DRUGS (1)
  1. ENBREL [Suspect]
     Active Substance: ETANERCEPT
     Indication: RHEUMATOID ARTHRITIS
     Dosage: 50 MG, QWK
     Route: 065

REACTIONS (12)
  - Dizziness [Not Recovered/Not Resolved]
  - Sleep disorder [Unknown]
  - Injection site bruising [Unknown]
  - Injection site pain [Unknown]
  - Wrong technique in product usage process [Unknown]
  - Injection site discolouration [Unknown]
  - Memory impairment [Unknown]
  - Pain in extremity [Unknown]
  - Feeling abnormal [Unknown]
  - Palpitations [Unknown]
  - Asthenopia [Unknown]
  - Fatigue [Unknown]

NARRATIVE: CASE EVENT DATE: 20170314
